FAERS Safety Report 7012948-2 (Version None)
Quarter: 2010Q3

REPORT INFORMATION
  Report Type: 
  Country: None (occurrence: None)
  Receive Date: 20100924
  Receipt Date: 20100916
  Transmission Date: 20110219
  Serious: Yes (Other)
  Sender: FDA-Public Use
  Company Number: US-PURDUE-USA-2010-0047148

PATIENT
  Sex: Male

DRUGS (3)
  1. OXYCONTIN [Suspect]
     Indication: BACK PAIN
     Dosage: 30 MG, TID
     Dates: start: 20100801
  2. OXYCONTIN [Suspect]
     Indication: INTERVERTEBRAL DISC DISORDER
  3. OXYIR CAPSULES 5 MG [Concomitant]
     Indication: BREAKTHROUGH PAIN
     Dosage: 5 MG, TID

REACTIONS (2)
  - GASTRIC BYPASS [None]
  - INADEQUATE ANALGESIA [None]
